FAERS Safety Report 23661478 (Version 1)
Quarter: 2024Q1

REPORT INFORMATION
  Report Type: Spontaneous
  Country: US (occurrence: US)
  Receive Date: 20240322
  Receipt Date: 20240322
  Transmission Date: 20240410
  Serious: No
  Sender: FDA-Public Use
  Company Number: US-BIOVITRUM-2023-US-010871

PATIENT
  Age: 42 Year
  Sex: Male

DRUGS (2)
  1. KINERET [Suspect]
     Active Substance: ANAKINRA
     Indication: Pericarditis
     Dosage: ONCE DAILY?100 MG/0.67ML
     Route: 058
     Dates: start: 20230412
  2. KINERET [Suspect]
     Active Substance: ANAKINRA
     Indication: Rheumatoid arthritis
     Dosage: ONCE DAILY
     Route: 058
     Dates: start: 20230413

REACTIONS (7)
  - Injection site pruritus [Unknown]
  - Injection site irritation [Unknown]
  - Product dose omission issue [Unknown]
  - Product use issue [Unknown]
  - Injection site erythema [Unknown]
  - Needle issue [Unknown]
  - Gastrooesophageal reflux disease [Unknown]
